FAERS Safety Report 16645834 (Version 1)
Quarter: 2019Q3

REPORT INFORMATION
  Report Type: Report from Study
  Country: FR (occurrence: FR)
  Receive Date: 20190730
  Receipt Date: 20190730
  Transmission Date: 20191004
  Serious: Yes (Other)
  Sender: FDA-Public Use
  Company Number: FR-TEVA-2019-FR-1084265

PATIENT

DRUGS (1)
  1. 5-FLUOROURACIL [Suspect]
     Active Substance: FLUOROURACIL
     Indication: SQUAMOUS CELL CARCINOMA
     Dosage: CONSECUTIVELY FOR 4 DAYS EVERY 21 DAYS
     Route: 042

REACTIONS (1)
  - Respiratory failure [Unknown]
